FAERS Safety Report 8915283 (Version 1)
Quarter: 2012Q4

REPORT INFORMATION
  Report Type: 
  Country: US (occurrence: US)
  Receive Date: 20121119
  Receipt Date: 20121119
  Transmission Date: 20130627
  Serious: No
  Sender: FDA-Public Use
  Company Number: US-PFIZER INC-2012287224

PATIENT
  Age: 56 Year
  Sex: Female
  Weight: 54.42 kg

DRUGS (3)
  1. LIPITOR [Suspect]
     Indication: HIGH CHOLESTEROL
     Dosage: 40 mg, daily
  2. NEXIUM [Concomitant]
     Indication: ACID REFLUX (ESOPHAGEAL)
     Dosage: 40 mg, daily
  3. CLIMARA [Concomitant]
     Indication: MENOPAUSE
     Dosage: 5 mg, weekly

REACTIONS (1)
  - Sneezing [Not Recovered/Not Resolved]
